FAERS Safety Report 7227555-6 (Version None)
Quarter: 2011Q1

REPORT INFORMATION
  Report Type: 
  Country: None (occurrence: None)
  Receive Date: 20110105
  Receipt Date: 20101223
  Transmission Date: 20110831
  Serious: Yes (Hospitalization, Other)
  Sender: FDA-Public Use
  Company Number: 013902

PATIENT
  Age: 56 Year
  Sex: Female

DRUGS (6)
  1. KEPPRA [Suspect]
     Indication: EPILEPSY
     Route: 048
     Dates: start: 20100101
  2. KEPPRA [Suspect]
     Indication: PARTIAL SEIZURES
     Route: 048
     Dates: start: 20100101
  3. KEPPRA [Suspect]
     Indication: EPILEPSY
     Route: 048
     Dates: start: 20100101
  4. KEPPRA [Suspect]
     Indication: PARTIAL SEIZURES
     Route: 048
     Dates: start: 20100101
  5. KEPPRA [Suspect]
     Indication: EPILEPSY
     Route: 048
     Dates: start: 20090401
  6. KEPPRA [Suspect]
     Indication: PARTIAL SEIZURES
     Route: 048
     Dates: start: 20090401

REACTIONS (14)
  - DYSURIA [None]
  - DIZZINESS [None]
  - PRODUCT QUALITY ISSUE [None]
  - CONVULSION [None]
  - COORDINATION ABNORMAL [None]
  - WEIGHT INCREASED [None]
  - DYSPHEMIA [None]
  - SOMNOLENCE [None]
  - MALAISE [None]
  - FAECAL INCONTINENCE [None]
  - DAYDREAMING [None]
  - URINARY INCONTINENCE [None]
  - DRUG INEFFECTIVE [None]
  - FALL [None]
